FAERS Safety Report 4753313-8 (Version None)
Quarter: 2005Q3

REPORT INFORMATION
  Report Type: 
  Country: None (occurrence: None)
  Receive Date: 20050823
  Receipt Date: 20050810
  Transmission Date: 20060218
  Serious: Yes (Other)
  Sender: FDA-Public Use
  Company Number: US-2005-007019

PATIENT
  Age: 50 Year
  Sex: Male
  Weight: 82.5 kg

DRUGS (15)
  1. CAMPATH [Suspect]
     Indication: CHRONIC LYMPHOCYTIC LEUKAEMIA
     Dosage: SEE IMAGE
     Route: 058
     Dates: start: 20050124, end: 20050124
  2. CAMPATH [Suspect]
     Indication: CHRONIC LYMPHOCYTIC LEUKAEMIA
     Dosage: SEE IMAGE
     Route: 058
     Dates: start: 20020125, end: 20050125
  3. CAMPATH [Suspect]
     Indication: CHRONIC LYMPHOCYTIC LEUKAEMIA
     Dosage: SEE IMAGE
     Route: 058
     Dates: start: 20050126, end: 20050126
  4. CAMPATH [Suspect]
     Indication: CHRONIC LYMPHOCYTIC LEUKAEMIA
     Dosage: SEE IMAGE
     Route: 058
     Dates: start: 20050131, end: 20050415
  5. BENADRYL ^WARNER-LAMBERT^ /USA/ (DIPHENHYDRAMINE HYDROCHLORIDE) [Concomitant]
  6. DECADRON /CAN/ [Concomitant]
  7. TYLENOL [Concomitant]
  8. CLARITIN [Concomitant]
  9. BACTRIM DS [Concomitant]
  10. ACYCLOVIR [Concomitant]
  11. FLUCONAZOLE [Concomitant]
  12. DILTIA XT (DILTIAZEM HYDROCHLORIDE) [Concomitant]
  13. LISINOPRIL W/HYDROCHLOROTHIAZIDE (LISINOPRIL) [Concomitant]
  14. LIPITOR [Concomitant]
  15. SELENIUM (SELENIUM) [Concomitant]

REACTIONS (4)
  - ANAEMIA [None]
  - RASH [None]
  - RETINAL EXUDATES [None]
  - RETINAL INFARCTION [None]
